FAERS Safety Report 4461644-4 (Version None)
Quarter: 2004Q3

REPORT INFORMATION
  Report Type: 
  Country: None (occurrence: None)
  Receive Date: 20040923
  Receipt Date: 20040913
  Transmission Date: 20050211
  Serious: No
  Sender: FDA-Public Use
  Company Number: 2004-120218-NL

PATIENT
  Age: 76 Year
  Sex: Female

DRUGS (6)
  1. MIRTAZAPINE [Suspect]
     Indication: DEPRESSION
     Dosage: 15 MG; ORAL
     Route: 048
     Dates: start: 20040818, end: 20040819
  2. LANSOPRAZOLE [Concomitant]
  3. SERTRALINE HCL [Concomitant]
  4. FRUSEMIDE [Concomitant]
  5. PARACETAMOL [Concomitant]
  6. TRAMADOL HCL [Concomitant]

REACTIONS (5)
  - ERYTHEMA [None]
  - GLOSSODYNIA [None]
  - HYPERSENSITIVITY [None]
  - PHARYNGOLARYNGEAL PAIN [None]
  - TONGUE DISORDER [None]
